FAERS Safety Report 17721438 (Version 2)
Quarter: 2020Q2

REPORT INFORMATION
  Report Type: Spontaneous
  Country: US (occurrence: US)
  Receive Date: 20200429
  Receipt Date: 20200604
  Transmission Date: 20200714
  Serious: Yes (Death, Other)
  Sender: FDA-Public Use
  Company Number: US-BRISTOL-MYERS SQUIBB COMPANY-BMS-2020-034479

PATIENT
  Age: 65 Year
  Sex: Female

DRUGS (1)
  1. OPDIVO [Suspect]
     Active Substance: NIVOLUMAB
     Indication: MYELODYSPLASTIC SYNDROME
     Dosage: 240 MILLIGRAM, Q2WK
     Route: 042
     Dates: end: 20200424

REACTIONS (3)
  - Intentional product use issue [Unknown]
  - Malignant neoplasm progression [Fatal]
  - Drug ineffective [Unknown]

NARRATIVE: CASE EVENT DATE: 20200424
